FAERS Safety Report 6289577-1 (Version None)
Quarter: 2009Q3

REPORT INFORMATION
  Report Type: 
  Country: None (occurrence: None)
  Receive Date: 20090730
  Receipt Date: 20090629
  Transmission Date: 20100115
  Serious: No
  Sender: FDA-Public Use
  Company Number: US-BAYER-200925261NA

PATIENT
  Sex: Female

DRUGS (2)
  1. AVELOX [Suspect]
     Indication: PNEUMONIA
  2. AMBIEN CR [Concomitant]

REACTIONS (2)
  - ABDOMINAL DISCOMFORT [None]
  - INSOMNIA [None]
